FAERS Safety Report 10184017 (Version 1)
Quarter: 2014Q2

REPORT INFORMATION
  Report Type: Spontaneous
  Country: DK (occurrence: DK)
  Receive Date: 20140520
  Receipt Date: 20140520
  Transmission Date: 20141212
  Serious: Yes (Disabling)
  Sender: FDA-Public Use
  Company Number: DK-ELI_LILLY_AND_COMPANY-DK201405002395

PATIENT
  Sex: Female

DRUGS (5)
  1. FORSTEO [Suspect]
     Indication: OSTEOPOROSIS
     Dosage: 20 UG, QD
     Route: 058
     Dates: start: 20130918, end: 20140116
  2. LEVOTIROXINA [Concomitant]
     Indication: ADDISON^S DISEASE
     Route: 065
  3. FLUDROCORTISONE ACETATE [Concomitant]
     Indication: ADDISON^S DISEASE
     Route: 065
  4. HYDROCORTISON                      /00028604/ [Concomitant]
     Route: 065
  5. UNIKALK PLUS [Concomitant]
     Route: 065

REACTIONS (2)
  - Neuralgia [Not Recovered/Not Resolved]
  - Chills [Unknown]
